FAERS Safety Report 4455538-8 (Version None)
Quarter: 2004Q3

REPORT INFORMATION
  Report Type: 
  Country: None (occurrence: None)
  Receive Date: 20040922
  Receipt Date: 20040820
  Transmission Date: 20050211
  Serious: Yes (Death, Other)
  Sender: FDA-Public Use
  Company Number: 200416378US

PATIENT
  Sex: Female

DRUGS (8)
  1. ARAVA [Suspect]
     Indication: RHEUMATOID ARTHRITIS
     Dates: start: 20020801
  2. ENBREL [Suspect]
     Indication: RHEUMATOID ARTHRITIS
     Dosage: DOSE: UNK
  3. PREDNISONE [Concomitant]
  4. FOSAMAX [Concomitant]
     Dosage: DOSE: UNK
  5. NORVASC [Concomitant]
  6. ISOSORBIDE [Concomitant]
  7. ZOCOR [Concomitant]
  8. ZOLOFT [Concomitant]

REACTIONS (2)
  - MYOCARDIAL INFARCTION [None]
  - RENAL FAILURE ACUTE [None]
